FAERS Safety Report 4598356-2 (Version None)
Quarter: 2005Q1

REPORT INFORMATION
  Report Type: 
  Country: None (occurrence: None)
  Receive Date: 20050304
  Receipt Date: 20050225
  Transmission Date: 20050727
  Serious: Yes (Death, Life-Threatening, Other)
  Sender: FDA-Public Use
  Company Number: 200511689GDDC

PATIENT
  Age: 60 Year
  Sex: Male
  Weight: 55 kg

DRUGS (8)
  1. ENOXAPARIN [Suspect]
     Indication: THROMBOSIS PROPHYLAXIS
     Route: 058
     Dates: start: 20050224, end: 20050225
  2. DEPLATT [Suspect]
     Route: 048
     Dates: start: 20050223, end: 20050224
  3. MIDAZOLAM HCL [Concomitant]
     Dates: start: 20050224, end: 20050224
  4. VITAMIN K [Concomitant]
     Route: 058
     Dates: start: 20050224, end: 20050227
  5. DOPAMINE [Concomitant]
     Route: 042
     Dates: start: 20050224, end: 20050227
  6. METROGYL [Concomitant]
     Route: 042
     Dates: start: 20050224, end: 20050227
  7. CEFTRIAXONE [Concomitant]
     Route: 042
     Dates: start: 20050224, end: 20050227
  8. PANTOCID [Concomitant]
     Dosage: DOSE UNIT: MILLILITRE PER HOUR
     Route: 042
     Dates: start: 20050224, end: 20050227

REACTIONS (5)
  - DEPRESSED LEVEL OF CONSCIOUSNESS [None]
  - HYPOXIA [None]
  - PNEUMONIA ASPIRATION [None]
  - RESPIRATORY DISTRESS [None]
  - UPPER GASTROINTESTINAL HAEMORRHAGE [None]
